FAERS Safety Report 16309143 (Version 2)
Quarter: 2019Q2

REPORT INFORMATION
  Report Type: Report from Study
  Country: DE (occurrence: DE)
  Receive Date: 20190514
  Receipt Date: 20190521
  Transmission Date: 20190711
  Serious: Yes (Death)
  Sender: FDA-Public Use
  Company Number: DE-BEH-2019102315

PATIENT
  Age: 82 Year
  Sex: Female
  Weight: 68 kg

DRUGS (8)
  1. PRIVIGEN [Suspect]
     Active Substance: HUMAN IMMUNOGLOBULIN G
     Indication: SECONDARY IMMUNODEFICIENCY
     Dosage: 20 G, TOT
     Route: 042
     Dates: start: 20180530, end: 20180530
  2. L-THYROXIN HENNING [Concomitant]
     Active Substance: LEVOTHYROXINE SODIUM
     Route: 065
  3. IDELALISIB [Concomitant]
     Active Substance: IDELALISIB
     Dosage: 150 MG, QD
     Route: 065
  4. DICLAC                             /00372302/ [Concomitant]
     Active Substance: DICLOFENAC POTASSIUM
     Dosage: 100 MG, PRN
     Route: 065
  5. PRIVIGEN [Suspect]
     Active Substance: HUMAN IMMUNOGLOBULIN G
     Indication: CHRONIC LYMPHOCYTIC LEUKAEMIA
     Dosage: 20 G, TOT
     Route: 042
     Dates: start: 20180503, end: 20180503
  6. PRIVIGEN [Suspect]
     Active Substance: HUMAN IMMUNOGLOBULIN G
     Indication: INFECTION
     Dosage: 20 G, TOT
     Route: 042
     Dates: start: 20180810, end: 20180810
  7. PRIVIGEN [Suspect]
     Active Substance: HUMAN IMMUNOGLOBULIN G
     Dosage: 20 G, TOT
     Route: 042
     Dates: start: 20180907, end: 20180907
  8. PARACETAMOL [Concomitant]
     Active Substance: ACETAMINOPHEN
     Dosage: 500 MG, PRN
     Route: 065

REACTIONS (1)
  - Death [Fatal]
